FAERS Safety Report 16271416 (Version 1)
Quarter: 2019Q2

REPORT INFORMATION
  Report Type: Spontaneous
  Country: US (occurrence: US)
  Receive Date: 20190505
  Receipt Date: 20190505
  Transmission Date: 20190711
  Serious: No
  Sender: FDA-Public Use
  Company Number: US-SHIRE-US201914585

PATIENT
  Age: 12 Year
  Sex: Male

DRUGS (1)
  1. ELAPRASE [Suspect]
     Active Substance: IDURSULFASE
     Indication: MUCOPOLYSACCHARIDOSIS II
     Dosage: 3 DOSAGE FORM, 1X/WEEK
     Route: 042
     Dates: start: 20080912

REACTIONS (2)
  - Inappropriate schedule of product administration [Unknown]
  - Motion sickness [Recovered/Resolved]

NARRATIVE: CASE EVENT DATE: 20190304
